FAERS Safety Report 9564733 (Version 2)
Quarter: 2013Q4

REPORT INFORMATION
  Report Type: Spontaneous
  Country: US (occurrence: US)
  Receive Date: 20130930
  Receipt Date: 20131010
  Transmission Date: 20140711
  Serious: No
  Sender: FDA-Public Use
  Company Number: US-PFIZER INC-2013279747

PATIENT
  Age: 67 Year
  Sex: Male
  Weight: 67.12 kg

DRUGS (2)
  1. XELJANZ [Suspect]
     Indication: RHEUMATOID ARTHRITIS
     Dosage: 5 MG, 2X/DAY
     Route: 048
     Dates: start: 201308, end: 20130912
  2. METHOTREXATE [Concomitant]
     Dosage: UNK

REACTIONS (2)
  - Arthralgia [Recovering/Resolving]
  - Myalgia [Recovered/Resolved]
